FAERS Safety Report 8964358 (Version 1)
Quarter: 2012Q4

REPORT INFORMATION
  Report Type: 
  Country: US (occurrence: US)
  Receive Date: 20121213
  Receipt Date: 20121213
  Transmission Date: 20130627
  Serious: No
  Sender: FDA-Public Use
  Company Number: US-PFIZER INC-2012310865

PATIENT
  Age: 43 Year
  Sex: Male
  Weight: 76.64 kg

DRUGS (1)
  1. VIAGRA [Suspect]
     Indication: ERECTILE DYSFUNCTION
     Dosage: 350 mg (7 tablets of 50mg), daily
     Route: 048
     Dates: start: 20121128

REACTIONS (5)
  - Intentional drug misuse [Unknown]
  - Rash papular [Unknown]
  - Scab [Unknown]
  - Pruritus [Unknown]
  - Skin exfoliation [Unknown]
